FAERS Safety Report 20185208 (Version 2)
Quarter: 2022Q1

REPORT INFORMATION
  Report Type: Spontaneous
  Country: GB (occurrence: GB)
  Receive Date: 20211215
  Receipt Date: 20220211
  Transmission Date: 20220423
  Serious: Yes (Death, Hospitalization, Other)
  Sender: FDA-Public Use
  Company Number: None

PATIENT
  Age: 61 Year
  Sex: Male
  Weight: 95 kg

DRUGS (17)
  1. LINAGLIPTIN [Suspect]
     Active Substance: LINAGLIPTIN
     Indication: Type 2 diabetes mellitus
     Dosage: ONE IN THE MORNING
     Route: 048
     Dates: start: 20190925, end: 20211203
  2. TAMSULOSIN HYDROCHLORIDE [Concomitant]
     Active Substance: TAMSULOSIN HYDROCHLORIDE
     Indication: Product used for unknown indication
     Dates: start: 20190315
  3. BALNEUM PLUS BATH ADDITIVE [Concomitant]
     Indication: Product used for unknown indication
     Dosage: BALNEUM PLUS BATH OIL
     Dates: start: 2001
  4. PFIZER-BIONTECH COVID-19 VACCINE [Concomitant]
     Active Substance: TOZINAMERAN
     Indication: COVID-19 immunisation
     Dosage: DOSE 3C
     Dates: start: 20211127, end: 20211127
  5. PFIZER-BIONTECH COVID-19 VACCINE [Concomitant]
     Active Substance: TOZINAMERAN
     Dosage: DOSE 1
     Dates: start: 20210111, end: 20210111
  6. PFIZER-BIONTECH COVID-19 VACCINE [Concomitant]
     Active Substance: TOZINAMERAN
     Dosage: DOSE 2
     Dates: start: 20210428, end: 20210428
  7. OILATUM PLUS [Concomitant]
     Indication: Product used for unknown indication
     Dosage: OILATUM BATH ADDATIVE
     Dates: start: 2007
  8. OILATUM PLUS [Concomitant]
  9. FLUTICASONE FUROATE\VILANTEROL TRIFENATATE [Concomitant]
     Active Substance: FLUTICASONE FUROATE\VILANTEROL TRIFENATATE
     Indication: Product used for unknown indication
     Dates: start: 201411
  10. FLUCELVAX TETRA [Concomitant]
     Active Substance: INFLUENZA VIRUS VACCINE
     Indication: Product used for unknown indication
     Dates: start: 20211016, end: 20211016
  11. CETIRIZINE HYDROCHLORIDE [Concomitant]
     Active Substance: CETIRIZINE HYDROCHLORIDE
     Indication: Product used for unknown indication
     Dates: start: 2007
  12. CETIRIZINE HYDROCHLORIDE [Concomitant]
     Active Substance: CETIRIZINE HYDROCHLORIDE
  13. FLUTICASONE FUROATE [Concomitant]
     Active Substance: FLUTICASONE FUROATE
     Indication: Product used for unknown indication
     Dates: start: 2007
  14. FLUTICASONE FUROATE [Concomitant]
     Active Substance: FLUTICASONE FUROATE
  15. METFORMIN [Concomitant]
     Active Substance: METFORMIN HYDROCHLORIDE
     Indication: Product used for unknown indication
     Dates: start: 20190625
  16. RAMIPRIL [Concomitant]
     Active Substance: RAMIPRIL
     Indication: Product used for unknown indication
     Dates: start: 20131122
  17. ALBUTEROL [Concomitant]
     Active Substance: ALBUTEROL
     Indication: Product used for unknown indication
     Dates: start: 2005

REACTIONS (16)
  - Pancreatitis acute [Fatal]
  - Vomiting [Unknown]
  - Abdominal distension [Unknown]
  - Acute kidney injury [Not Recovered/Not Resolved]
  - Hyperkalaemia [Unknown]
  - Localised oedema [Unknown]
  - Peritoneal disorder [Unknown]
  - Splenic vein thrombosis [Unknown]
  - Gastrointestinal oedema [Unknown]
  - Haematuria [Unknown]
  - Acidosis [Not Recovered/Not Resolved]
  - Renal failure [Not Recovered/Not Resolved]
  - Abdominal pain [Unknown]
  - Abdominal tenderness [Unknown]
  - Acidosis [Not Recovered/Not Resolved]
  - Tenderness [Unknown]

NARRATIVE: CASE EVENT DATE: 20211203
